FAERS Safety Report 8901291 (Version 1)
Quarter: 2012Q4

REPORT INFORMATION
  Report Type: 
  Country: US (occurrence: US)
  Receive Date: 20121109
  Receipt Date: 20121109
  Transmission Date: 20130627
  Serious: No
  Sender: FDA-Public Use
  Company Number: US-PFIZER INC-2012278281

PATIENT
  Age: 59 Year
  Sex: Male

DRUGS (1)
  1. SUTENT [Suspect]
     Indication: LIVER CARCINOMA
     Dosage: 50 mg, 1x/day
     Dates: start: 20120605

REACTIONS (3)
  - Disease progression [Unknown]
  - Hepatic cancer [Unknown]
  - Off label use [Unknown]
